FAERS Safety Report 6973483-0 (Version None)
Quarter: 2010Q3

REPORT INFORMATION
  Report Type: 
  Country: None (occurrence: None)
  Receive Date: 20100909
  Receipt Date: 20100830
  Transmission Date: 20110219
  Serious: Yes (Other)
  Sender: FDA-Public Use
  Company Number: US-PFIZER INC-2010092777

PATIENT
  Sex: Female

DRUGS (4)
  1. CADUET [Suspect]
     Indication: HYPERTENSION
     Dosage: 10 MG/10 MG, DAILY
     Route: 048
     Dates: start: 20080101
  2. CADUET [Suspect]
     Indication: BLOOD CHOLESTEROL INCREASED
  3. CADUET [Suspect]
  4. CADUET [Suspect]
     Indication: HYPERLIPIDAEMIA

REACTIONS (3)
  - BLOOD PRESSURE FLUCTUATION [None]
  - OEDEMA PERIPHERAL [None]
  - SWELLING FACE [None]
